FAERS Safety Report 7388840-0 (Version None)
Quarter: 2011Q2

REPORT INFORMATION
  Report Type: 
  Country: None (occurrence: None)
  Receive Date: 20110401
  Receipt Date: 20110328
  Transmission Date: 20111010
  Serious: Yes (Other)
  Sender: FDA-Public Use
  Company Number: ES-ABBOTT-11P-144-0712581-00

PATIENT
  Age: 45 Year
  Sex: Female
  Weight: 64.8 kg

DRUGS (1)
  1. HUMIRA [Suspect]
     Indication: CROHN'S DISEASE
     Route: 058
     Dates: start: 20101008, end: 20110310

REACTIONS (2)
  - MIGRAINE [None]
  - HEADACHE [None]
